FAERS Safety Report 4941130-5 (Version None)
Quarter: 2006Q1

REPORT INFORMATION
  Report Type: 
  Country: None (occurrence: None)
  Receive Date: 20060313
  Receipt Date: 20060119
  Transmission Date: 20060701
  Serious: Yes (Hospitalization)
  Sender: FDA-Public Use
  Company Number: JP-JPN-A200600263

PATIENT
  Sex: Male
  Weight: 2.8 kg

DRUGS (6)
  1. PAXIL [Suspect]
     Dosage: 10MG TWICE PER DAY
     Dates: start: 20051101, end: 20060112
  2. PAXIL [Suspect]
     Dosage: 10MG THREE TIMES PER DAY
     Dates: start: 20051201, end: 20060112
  3. MEILAX [Suspect]
     Dosage: 2MG TWICE PER DAY
     Dates: start: 20051001, end: 20060112
  4. FLUNITRAZEPAM [Suspect]
     Dosage: 4MG PER DAY
     Dates: start: 20051001, end: 20060112
  5. AMOXAN [Suspect]
     Dosage: 10MG THREE TIMES PER DAY
     Dates: start: 20051201, end: 20060112
  6. RHYTHMY [Suspect]
     Dates: end: 20060117

REACTIONS (5)
  - CONVULSION [None]
  - DRUG EXPOSURE DURING PREGNANCY [None]
  - DRUG WITHDRAWAL SYNDROME NEONATAL [None]
  - NEONATAL ASPHYXIA [None]
  - SOMNOLENCE [None]
